FAERS Safety Report 16245996 (Version 2)
Quarter: 2019Q2

REPORT INFORMATION
  Report Type: Spontaneous
  Country: JP (occurrence: JP)
  Receive Date: 20190426
  Receipt Date: 20190614
  Transmission Date: 20190711
  Serious: Yes (Life-Threatening, Hospitalization, Other)
  Sender: FDA-Public Use
  Company Number: JP-BRISTOL-MYERS SQUIBB COMPANY-BMS-2019-040988

PATIENT
  Age: 80 Year
  Sex: Female
  Weight: 49 kg

DRUGS (4)
  1. ELIQUIS [Suspect]
     Active Substance: APIXABAN
     Indication: CEREBROVASCULAR ACCIDENT PROPHYLAXIS
     Dosage: 2.5 MILLIGRAM, BID
     Route: 048
     Dates: start: 20190325
  2. YOKUKANSAN [Concomitant]
     Active Substance: HERBALS
     Indication: RESTLESSNESS
     Dosage: 2.5 GRAM, QD
     Route: 048
     Dates: start: 20190325, end: 20190409
  3. LANSOPRAZOLE. [Concomitant]
     Active Substance: LANSOPRAZOLE
     Indication: CHRONIC GASTRITIS
     Dosage: 15 MILLIGRAM, QD
     Route: 048
     Dates: start: 20190325
  4. MEMARY [Concomitant]
     Active Substance: MEMANTINE HYDROCHLORIDE
     Indication: DEMENTIA
     Dosage: 5 MILLIGRAM, QD
     Route: 048
     Dates: start: 20190325

REACTIONS (5)
  - Cerebellar infarction [Recovered/Resolved with Sequelae]
  - Hydrocephalus [Unknown]
  - Cerebellar haemorrhage [Recovered/Resolved with Sequelae]
  - Atrioventricular block second degree [Recovered/Resolved with Sequelae]
  - Atrial fibrillation [Recovered/Resolved with Sequelae]

NARRATIVE: CASE EVENT DATE: 20190414
